FAERS Safety Report 21004191 (Version 1)
Quarter: 2022Q2

REPORT INFORMATION
  Report Type: Spontaneous
  Country: US (occurrence: US)
  Receive Date: 20220624
  Receipt Date: 20220624
  Transmission Date: 20220721
  Serious: No
  Sender: FDA-Public Use
  Company Number: US-AVEO ONCOLOGY-2022-AVEO-US000098

PATIENT

DRUGS (21)
  1. FOTIVDA [Suspect]
     Active Substance: TIVOZANIB HYDROCHLORIDE
     Indication: Renal cell carcinoma
     Dosage: 1.34 MG, DAILY FOR 21 DAYS, THEN 7 DAYS OFF
     Route: 048
     Dates: start: 20220324
  2. FLONASE [Concomitant]
     Active Substance: FLUTICASONE PROPIONATE
  3. COENZYME Q10 [Concomitant]
     Active Substance: DIETARY SUPPLEMENT\UBIDECARENONE
  4. RABEPRAZOLE [Concomitant]
     Active Substance: RABEPRAZOLE
  5. CIALIS [Concomitant]
     Active Substance: TADALAFIL
  6. TESSALON [Concomitant]
     Active Substance: BENZONATATE
  7. CLINDAMYCIN [Concomitant]
     Active Substance: CLINDAMYCIN
  8. ASPIRIN [Concomitant]
     Active Substance: ASPIRIN
  9. CETIRIZINE [Concomitant]
     Active Substance: CETIRIZINE HYDROCHLORIDE
  10. FUROSEMIDE [Concomitant]
     Active Substance: FUROSEMIDE
  11. MAGNESIUM OXIDE [Concomitant]
     Active Substance: MAGNESIUM OXIDE
  12. POTASSIUM CHLORIDE [Concomitant]
     Active Substance: POTASSIUM CHLORIDE
  13. VITAMINS [Concomitant]
     Active Substance: VITAMINS
  14. SENNA [Concomitant]
     Active Substance: SENNA LEAF\SENNOSIDES\SENNOSIDES A AND B
  15. CYANOCOBALAMIN [Concomitant]
     Active Substance: CYANOCOBALAMIN
  16. ALLOPURINOL [Concomitant]
     Active Substance: ALLOPURINOL
  17. ATORVASTATIN [Concomitant]
     Active Substance: ATORVASTATIN
  18. MONTELUKAST [Concomitant]
     Active Substance: MONTELUKAST SODIUM
  19. ROPINIROLE [Concomitant]
     Active Substance: ROPINIROLE
  20. TAMSULOSIN [Concomitant]
     Active Substance: TAMSULOSIN
  21. ALPRAZOLAM [Concomitant]
     Active Substance: ALPRAZOLAM

REACTIONS (13)
  - Nausea [Unknown]
  - Diarrhoea [Unknown]
  - Dysphonia [Unknown]
  - Decreased appetite [Unknown]
  - Oral pain [Unknown]
  - Oral mucosal erythema [Unknown]
  - Nocturia [Unknown]
  - Asthenia [Unknown]
  - Skin exfoliation [Unknown]
  - Blister [Unknown]
  - Tremor [Unknown]
  - Chills [Unknown]
  - Unevaluable event [Unknown]
